FAERS Safety Report 10311499 (Version 1)
Quarter: 2014Q3

REPORT INFORMATION
  Report Type: Spontaneous
  Country: CH (occurrence: None)
  Receive Date: 20140715
  Receipt Date: 20140715
  Transmission Date: 20150326
  Serious: Yes (Death)
  Sender: FDA-Public Use
  Company Number: 20140402

PATIENT

DRUGS (4)
  1. FERINJECT [Suspect]
     Active Substance: FERRIC CARBOXYMALTOSE
     Indication: ANAEMIA OF PREGNANCY
     Dosage: 1000MG/250ML NS OVER 15 MIN TRANSPLACENTAL
     Route: 064
     Dates: start: 20140515, end: 20140515
  2. KLACID (CLARITHROMYCIN) [Concomitant]
     Active Substance: CLARITHROMYCIN
  3. AMPICILLIN [Concomitant]
     Active Substance: AMPICILLIN
  4. FERINJECT [Suspect]
     Active Substance: FERRIC CARBOXYMALTOSE
     Indication: IRON DEFICIENCY ANAEMIA
     Dosage: 1000MG/250ML NS OVER 15 MIN TRANSPLACENTAL
     Route: 064
     Dates: start: 20140515, end: 20140515

REACTIONS (2)
  - Foetal exposure during pregnancy [None]
  - Foetal death [None]

NARRATIVE: CASE EVENT DATE: 2014
